FAERS Safety Report 8556671-1 (Version None)
Quarter: 2012Q2

REPORT INFORMATION
  Report Type: 
  Country: None (occurrence: None)
  Receive Date: 20120418
  Receipt Date: 20100322
  Transmission Date: 20120825
  Serious: Yes (Other)
  Sender: FDA-Public Use
  Company Number: PHHY2010US18445

PATIENT
  Sex: Female

DRUGS (1)
  1. ENABLEX [Suspect]
     Indication: PARKINSON'S DISEASE
     Dosage: 1.5 MG, ORAL
     Route: 048

REACTIONS (1)
  - BLOOD PRESSURE INCREASED [None]
